FAERS Safety Report 10288976 (Version 1)
Quarter: 2014Q3

REPORT INFORMATION
  Report Type: Spontaneous
  Country: AU (occurrence: AU)
  Receive Date: 20140709
  Receipt Date: 20140709
  Transmission Date: 20150326
  Serious: Yes (Hospitalization)
  Sender: FDA-Public Use
  Company Number: AU-MERCK-1407AUS003429

PATIENT
  Age: 30 Year
  Sex: Male

DRUGS (3)
  1. PEGINTERFERON ALFA-2B [Suspect]
     Active Substance: PEGINTERFERON ALFA-2B
  2. RIBAVIRIN. [Suspect]
     Active Substance: RIBAVIRIN
  3. TELAPREVIR [Suspect]
     Active Substance: TELAPREVIR
     Dosage: DOSE UNSPECIFIED
     Route: 048

REACTIONS (1)
  - Pancreatitis [Unknown]
